FAERS Safety Report 18901479 (Version 3)
Quarter: 2021Q4

REPORT INFORMATION
  Report Type: Spontaneous
  Country: BR (occurrence: BR)
  Receive Date: 20210217
  Receipt Date: 20211121
  Transmission Date: 20220303
  Serious: Yes (Hospitalization, Other)
  Sender: FDA-Public Use
  Company Number: BR-ASTRAZENECA-2014SE62559

PATIENT
  Age: 910 Month
  Sex: Male
  Weight: 72 kg

DRUGS (7)
  1. JANUMET [Suspect]
     Active Substance: METFORMIN HYDROCHLORIDE\SITAGLIPTIN PHOSPHATE
     Indication: Diabetes mellitus
     Dosage: 50 MILLIGRAM, QD
     Route: 048
     Dates: start: 2011
  2. BRILINTA [Suspect]
     Active Substance: TICAGRELOR
     Dosage: 90 MILLIGRAM, QD
     Route: 048
     Dates: start: 201306, end: 201308
  3. CLOPIN [CLOZAPINE] [Concomitant]
     Indication: Thrombosis prophylaxis
     Dosage: 75 MILLIGRAM, QD
     Route: 048
     Dates: start: 201307
  4. MILGAMMA [BENFOTIAMINE;CYANOCOBALAMIN;PYRIDOXINE HYDROCHLORIDE] [Concomitant]
     Indication: Diabetes mellitus
     Dosage: 75 MILLIGRAM, QD
     Route: 048
     Dates: start: 2013
  5. DUTASTERIDE\TAMSULOSIN [Concomitant]
     Active Substance: DUTASTERIDE\TAMSULOSIN
     Indication: Prostatic specific antigen increased
     Dosage: 0.5 MILLIGRAM, QD
     Route: 048
     Dates: start: 201304
  6. ATORVASTATIN CALCIUM [Concomitant]
     Active Substance: ATORVASTATIN CALCIUM
     Indication: Thrombosis prophylaxis
     Dosage: 20 MILLIGRAM, QD
     Route: 048
  7. ASPIRIN [Concomitant]
     Active Substance: ASPIRIN
     Route: 048

REACTIONS (6)
  - Prostatic specific antigen increased [Recovering/Resolving]
  - Prostatomegaly [Unknown]
  - Infarction [Recovered/Resolved]
  - Ulcer haemorrhage [Recovered/Resolved]
  - Gastrooesophageal reflux disease [Unknown]
  - Off label use [Recovered/Resolved]

NARRATIVE: CASE EVENT DATE: 20130601
